FAERS Safety Report 6041227-5 (Version None)
Quarter: 2009Q1

REPORT INFORMATION
  Report Type: 
  Country: None (occurrence: None)
  Receive Date: 20090116
  Receipt Date: 20080918
  Transmission Date: 20090719
  Serious: No
  Sender: FDA-Public Use
  Company Number: US-BRISTOL-MYERS SQUIBB COMPANY-14340228

PATIENT

DRUGS (2)
  1. ABILIFY [Suspect]
     Indication: MAJOR DEPRESSION
     Dosage: 1 DOSAGE FORM= 2 MG-10MG.
  2. ANTIDEPRESSANT NOS [Suspect]
     Indication: DEPRESSION

REACTIONS (1)
  - WEIGHT INCREASED [None]
